APPROVED DRUG PRODUCT: NETROMYCIN
Active Ingredient: NETILMICIN SULFATE
Strength: EQ 100MG BASE/ML
Dosage Form/Route: INJECTABLE;INJECTION
Application: N050544 | Product #003
Applicant: SCHERING CORP SUB SCHERING PLOUGH CORP
Approved: Feb 28, 1983 | RLD: No | RS: No | Type: DISCN